FAERS Safety Report 9752324 (Version 1)
Quarter: 2013Q4

REPORT INFORMATION
  Report Type: Spontaneous
  Country: US (occurrence: None)
  Receive Date: 20131212
  Receipt Date: 20131212
  Transmission Date: 20140711
  Serious: Yes (Disabling)
  Sender: FDA-Public Use
  Company Number: None

PATIENT
  Age: 65 Year
  Sex: Male

DRUGS (2)
  1. ZITHROMAX [Suspect]
     Indication: EAR INFECTION
     Route: 048
     Dates: start: 20031226, end: 20031231
  2. LEVAQUIN [Suspect]
     Indication: EAR INFECTION
     Route: 048
     Dates: start: 20040116, end: 20040126

REACTIONS (8)
  - Balance disorder [None]
  - Dizziness [None]
  - Gait disturbance [None]
  - Neuropathy peripheral [None]
  - Hypoaesthesia [None]
  - Asthenia [None]
  - Depression [None]
  - Memory impairment [None]
